FAERS Safety Report 24648086 (Version 1)
Quarter: 2024Q4

REPORT INFORMATION
  Report Type: Spontaneous
  Country: US (occurrence: US)
  Receive Date: 20241121
  Receipt Date: 20241121
  Transmission Date: 20250114
  Serious: No
  Sender: BAYER HEALTHCARE PHARMACEUTICALS INC.
  Company Number: US-BAYER-2024A165457

PATIENT
  Age: 34 Year
  Sex: Female

DRUGS (9)
  1. MIRENA [Suspect]
     Active Substance: LEVONORGESTREL
     Indication: Intrauterine contraception
     Dosage: 20?G/DAY
     Route: 015
     Dates: start: 201901
  2. MENOPUR [Concomitant]
     Active Substance: FOLLITROPIN\LUTEINIZING HORMONE
  3. FOLLISTIM AQ [Concomitant]
     Active Substance: FOLLITROPIN
  4. SKYRIZI [Concomitant]
     Active Substance: RISANKIZUMAB-RZAA
  5. LEUPROLIDE ACETATE [Concomitant]
     Active Substance: LEUPROLIDE ACETATE
  6. DUPIXENT [Concomitant]
     Active Substance: DUPILUMAB
  7. FOLLISTIM AQ [Concomitant]
     Active Substance: FOLLITROPIN
  8. GANIRELIX ACETATE [Concomitant]
     Active Substance: GANIRELIX ACETATE
  9. OVIDREL [Concomitant]
     Active Substance: CHORIOGONADOTROPIN ALFA

REACTIONS (1)
  - Eczema [None]
